FAERS Safety Report 12193715 (Version 1)
Quarter: 2016Q1

REPORT INFORMATION
  Report Type: Spontaneous
  Country: US (occurrence: US)
  Receive Date: 20160321
  Receipt Date: 20160321
  Transmission Date: 20160526
  Serious: No
  Sender: FDA-Public Use
  Company Number: US-JNJFOC-20160214029

PATIENT

DRUGS (1)
  1. CONCERTA [Suspect]
     Active Substance: METHYLPHENIDATE HYDROCHLORIDE
     Indication: ORTHOSTATIC HYPOTENSION
     Route: 048
     Dates: start: 201512

REACTIONS (3)
  - Off label use [Unknown]
  - Product use issue [Unknown]
  - Adverse event [Unknown]

NARRATIVE: CASE EVENT DATE: 201512
